FAERS Safety Report 8012750-9 (Version None)
Quarter: 2011Q4

REPORT INFORMATION
  Report Type: 
  Country: None (occurrence: None)
  Receive Date: 20111229
  Receipt Date: 20111220
  Transmission Date: 20120403
  Serious: Yes (Death)
  Sender: FDA-Public Use
  Company Number: CN-JNJFOC-20111209571

PATIENT
  Age: 78 Year
  Sex: Male

DRUGS (4)
  1. METHYLPREDNISOLONE SODIUM SUCCINATE [Concomitant]
     Indication: PUSTULAR PSORIASIS
     Route: 041
     Dates: start: 20111210, end: 20111218
  2. DEXAMETHASONE [Concomitant]
     Indication: PUSTULAR PSORIASIS
     Route: 041
     Dates: start: 20111130, end: 20111206
  3. REMICADE [Suspect]
     Indication: PUSTULAR PSORIASIS
     Route: 042
     Dates: start: 20111207, end: 20111207
  4. METHOTREXATE [Concomitant]
     Indication: PUSTULAR PSORIASIS
     Route: 041
     Dates: start: 20111209, end: 20111210

REACTIONS (4)
  - SEPSIS [None]
  - RESPIRATORY FAILURE [None]
  - HYPERKALAEMIA [None]
  - METABOLIC ACIDOSIS [None]
